FAERS Safety Report 10905219 (Version 1)
Quarter: 2015Q1

REPORT INFORMATION
  Report Type: Spontaneous
  Country: US (occurrence: FR)
  Receive Date: 20150311
  Receipt Date: 20150311
  Transmission Date: 20150721
  Serious: Yes (Hospitalization)
  Sender: FDA-Public Use
  Company Number: FR-FRI-1000075153

PATIENT
  Age: 63 Year
  Sex: Male

DRUGS (7)
  1. TAVANIC [Suspect]
     Active Substance: LEVOFLOXACIN
     Route: 048
     Dates: start: 20150113, end: 20150202
  2. OXCARBAZEPINE. [Suspect]
     Active Substance: OXCARBAZEPINE
     Indication: PAIN
     Dosage: 300 MG
     Route: 048
     Dates: start: 20150205, end: 20150208
  3. TRILEPTAL [Suspect]
     Active Substance: OXCARBAZEPINE
     Indication: PAIN
     Dosage: 60 MG/ML
     Route: 048
     Dates: start: 20150208, end: 20150213
  4. RANITIDINE EG [Suspect]
     Active Substance: RANITIDINE HYDROCHLORIDE
     Indication: GASTRIC ULCER
     Dosage: 150 MG
     Route: 048
     Dates: start: 20150206, end: 20150213
  5. SKENAN [Suspect]
     Active Substance: MORPHINE SULFATE
     Indication: PAIN
     Dosage: 10 MG SR
     Route: 048
     Dates: start: 20150106, end: 20150209
  6. CEFTAROLINE FOSAMIL [Suspect]
     Active Substance: CEFTAROLINE FOSAMIL
     Indication: STAPHYLOCOCCAL INFECTION
     Dosage: 1800 MG
     Route: 041
     Dates: start: 20150122, end: 20150216
  7. MORPHINE AGUETTANT [Suspect]
     Active Substance: MORPHINE HYDROCHLORIDE
     Indication: PAIN
     Dosage: 1 MG
     Route: 042
     Dates: start: 20150203, end: 20150218

REACTIONS (9)
  - Agranulocytosis [Recovered/Resolved]
  - Gastric ulcer [None]
  - Pain [Unknown]
  - Foot amputation [None]
  - Thromboangiitis obliterans [None]
  - Intentional product misuse [Recovered/Resolved]
  - Thrombocytopenia [Unknown]
  - Neutropenia [Recovered/Resolved]
  - Incorrect dose administered [None]

NARRATIVE: CASE EVENT DATE: 20150122
